FAERS Safety Report 11627855 (Version 1)
Quarter: 2015Q4

REPORT INFORMATION
  Report Type: Report from Study
  Country: BR (occurrence: BR)
  Receive Date: 20151014
  Receipt Date: 20151014
  Transmission Date: 20160304
  Serious: Yes (Death, Hospitalization)
  Sender: FDA-Public Use
  Company Number: BR-ROCHE-1645049

PATIENT
  Sex: Female

DRUGS (1)
  1. ACTEMRA [Suspect]
     Active Substance: TOCILIZUMAB
     Indication: RHEUMATOID ARTHRITIS
     Route: 065
     Dates: start: 20150401, end: 201508

REACTIONS (5)
  - Rheumatoid arthritis [Fatal]
  - Pain [Unknown]
  - Dyspnoea [Unknown]
  - Renal failure [Fatal]
  - Hypertension [Unknown]
